FAERS Safety Report 23884233 (Version 4)
Quarter: 2024Q4

REPORT INFORMATION
  Report Type: Report from Study
  Country: US (occurrence: US)
  Receive Date: 20240522
  Receipt Date: 20241018
  Transmission Date: 20250115
  Serious: Yes (Other)
  Sender: UCB
  Company Number: US-UCBSA-2024024639

PATIENT
  Age: 4 Year
  Sex: Female

DRUGS (5)
  1. FINTEPLA [Suspect]
     Active Substance: FENFLURAMINE
     Indication: Severe myoclonic epilepsy of infancy
     Dosage: 4ML Q AM AND 3ML Q PM
     Dates: start: 20201105
  2. FINTEPLA [Suspect]
     Active Substance: FENFLURAMINE
     Dosage: 2.5 MILLILITER, 3X/DAY (TID)
  3. FINTEPLA [Suspect]
     Active Substance: FENFLURAMINE
     Dosage: 2.5 MILLILITER, 3X/DAY (TID)
  4. FINTEPLA [Suspect]
     Active Substance: FENFLURAMINE
     Dosage: 2.5 MILLILITER, 3X/DAY (TID)
  5. XCOPRI [Suspect]
     Active Substance: CENOBAMATE
     Indication: Product used for unknown indication
     Dosage: UNK

REACTIONS (7)
  - Seizure [Not Recovered/Not Resolved]
  - Aggression [Not Recovered/Not Resolved]
  - Gait disturbance [Not Recovered/Not Resolved]
  - Feeling abnormal [Not Recovered/Not Resolved]
  - Drooling [Not Recovered/Not Resolved]
  - Product use issue [Unknown]
  - Off label use [Unknown]

NARRATIVE: CASE EVENT DATE: 20201105
